FAERS Safety Report 15360581 (Version 1)
Quarter: 2018Q3

REPORT INFORMATION
  Report Type: Spontaneous
  Country: US (occurrence: US)
  Receive Date: 20180907
  Receipt Date: 20180907
  Transmission Date: 20181010
  Serious: No
  Sender: FDA-Public Use
  Company Number: US-BAUSCH-BL-2018-023612

PATIENT
  Sex: Female

DRUGS (1)
  1. PROLENSA [Suspect]
     Active Substance: BROMFENAC SODIUM
     Indication: PRODUCT USED FOR UNKNOWN INDICATION
     Route: 065
     Dates: start: 201807

REACTIONS (4)
  - Headache [Unknown]
  - Eyelid pain [Unknown]
  - Eyelid oedema [Unknown]
  - Somnolence [Unknown]

NARRATIVE: CASE EVENT DATE: 2018
